FAERS Safety Report 7525016-8 (Version None)
Quarter: 2011Q2

REPORT INFORMATION
  Report Type: 
  Country: None (occurrence: None)
  Receive Date: 20110606
  Receipt Date: 20110526
  Transmission Date: 20111010
  Serious: Yes (Hospitalization, Other)
  Sender: FDA-Public Use
  Company Number: US-NOVOPROD-328998

PATIENT
  Sex: Male
  Weight: 126.8 kg

DRUGS (4)
  1. JANUVIA [Concomitant]
     Dosage: UNK
  2. LANTUS [Concomitant]
     Dosage: 20 U, UNK
  3. VICTOZA [Suspect]
     Indication: OBESITY
     Dosage: 1.2 MG, QD
     Route: 058
     Dates: start: 20110501, end: 20110511
  4. VICTOZA [Suspect]
     Indication: DIABETES MELLITUS
     Dosage: 0.6 MG, QD
     Route: 058
     Dates: start: 20110401, end: 20110501

REACTIONS (3)
  - NAUSEA [None]
  - DIARRHOEA [None]
  - PANCREATITIS [None]
